FAERS Safety Report 20609820 (Version 1)
Quarter: 2022Q1

REPORT INFORMATION
  Report Type: Spontaneous
  Country: US (occurrence: US)
  Receive Date: 20220318
  Receipt Date: 20220318
  Transmission Date: 20220423
  Serious: Yes (Other)
  Sender: FDA-Public Use
  Company Number: US-NOVARTISPH-NVSC2022US059920

PATIENT
  Age: 52 Year
  Sex: Female

DRUGS (3)
  1. IMIQUIMOD [Suspect]
     Active Substance: IMIQUIMOD
     Indication: Melanoma recurrent
     Dosage: UNK, QOD (EVERY OTHER DAY)
     Route: 065
  2. IMIQUIMOD [Suspect]
     Active Substance: IMIQUIMOD
     Dosage: UNK UNK, Q72H (EVERY THIRD DAY)
     Route: 065
  3. IMIQUIMOD [Suspect]
     Active Substance: IMIQUIMOD
     Dosage: UNK, QOD (AFTER 12 WEEKS OF TREATMENT, EVERY OTHER DAY)
     Route: 065

REACTIONS (8)
  - Haemorrhage [Unknown]
  - Oral discomfort [Unknown]
  - Dysgeusia [Unknown]
  - Fatigue [Recovered/Resolved]
  - Chills [Recovered/Resolved]
  - Pain [Unknown]
  - Tooth infection [Unknown]
  - Product use in unapproved indication [Unknown]
